FAERS Safety Report 24272450 (Version 1)
Quarter: 2024Q3

REPORT INFORMATION
  Report Type: Spontaneous
  Country: US (occurrence: US)
  Receive Date: 20240902
  Receipt Date: 20240902
  Transmission Date: 20241017
  Serious: Yes (Other)
  Sender: SPRINGWORKS THERAPEUTIC
  Company Number: US-SPRINGWORKS THERAPEUTICS-SW-001955

PATIENT
  Age: 60 Year
  Sex: Female

DRUGS (2)
  1. OGSIVEO [Suspect]
     Active Substance: NIROGACESTAT\NIROGACESTAT HYDROBROMIDE
     Indication: Product used for unknown indication
     Dosage: 150 MILLIGRAM, BID
     Route: 048
  2. OGSIVEO [Suspect]
     Active Substance: NIROGACESTAT\NIROGACESTAT HYDROBROMIDE
     Dosage: 50 MILLIGRAM, BID
     Route: 048

REACTIONS (4)
  - Acute kidney injury [Recovered/Resolved]
  - Gastrointestinal disorder [Recovered/Resolved]
  - Hypophagia [Recovered/Resolved]
  - Intentional underdose [Unknown]
